FAERS Safety Report 10205210 (Version 1)
Quarter: 2014Q2

REPORT INFORMATION
  Report Type: Spontaneous
  Country: BR (occurrence: BR)
  Receive Date: 20140529
  Receipt Date: 20140529
  Transmission Date: 20141212
  Serious: Yes (Hospitalization)
  Sender: FDA-Public Use
  Company Number: BR-PFIZER INC-2014144706

PATIENT
  Age: 86 Year
  Sex: Male
  Weight: 84 kg

DRUGS (3)
  1. CELEBRA [Suspect]
     Indication: LIGAMENT SPRAIN
     Dosage: 200 MG, 1 CAPSULE EVERY 12 HOURS
     Route: 048
     Dates: start: 1999
  2. CELEBRA [Suspect]
     Indication: SPINAL PAIN
  3. TYLENOL [Concomitant]
     Indication: PAIN
     Dosage: 500 MG, 1 TABLET 3X/DAY, IF FEELING PAINS
     Dates: start: 1999

REACTIONS (1)
  - Cardiac disorder [Unknown]
